FAERS Safety Report 4964475-1 (Version None)
Quarter: 2006Q1

REPORT INFORMATION
  Report Type: 
  Country: None (occurrence: None)
  Receive Date: 20060331
  Receipt Date: 20060317
  Transmission Date: 20060701
  Serious: Yes (Hospitalization)
  Sender: FDA-Public Use
  Company Number: US_0509122334

PATIENT
  Age: 40 Year
  Sex: Female
  Weight: 127 kg

DRUGS (5)
  1. ZYPREXA [Suspect]
     Indication: BIPOLAR DISORDER
     Dosage: 20 MG, DAILY (1/D), ORAL; 10 MG EACH EVENING, ORAL
     Route: 048
     Dates: start: 20011220, end: 20011221
  2. ZYPREXA [Suspect]
     Indication: BIPOLAR DISORDER
     Dosage: 20 MG, DAILY (1/D), ORAL; 10 MG EACH EVENING, ORAL
     Route: 048
     Dates: start: 20011221
  3. QUETIAPINE FUMARATE [Concomitant]
  4. VALIUM [Concomitant]
  5. ZOLOFT [Concomitant]

REACTIONS (3)
  - DIABETES MELLITUS NON-INSULIN-DEPENDENT [None]
  - DRUG HYPERSENSITIVITY [None]
  - PHYSICAL ASSAULT [None]
